FAERS Safety Report 22677436 (Version 6)
Quarter: 2025Q3

REPORT INFORMATION
  Report Type: Report from Study
  Country: CA (occurrence: CA)
  Receive Date: 20230706
  Receipt Date: 20250729
  Transmission Date: 20251020
  Serious: Yes (Other)
  Sender: TAKEDA
  Company Number: CA-TAKEDA-2023TUS005283

PATIENT
  Sex: Female

DRUGS (20)
  1. VEDOLIZUMAB [Suspect]
     Active Substance: VEDOLIZUMAB
     Indication: Crohn^s disease
  2. VEDOLIZUMAB [Suspect]
     Active Substance: VEDOLIZUMAB
  3. VEDOLIZUMAB [Suspect]
     Active Substance: VEDOLIZUMAB
  4. VEDOLIZUMAB [Suspect]
     Active Substance: VEDOLIZUMAB
  5. VEDOLIZUMAB [Suspect]
     Active Substance: VEDOLIZUMAB
  6. VEDOLIZUMAB [Suspect]
     Active Substance: VEDOLIZUMAB
     Dosage: 300 MILLIGRAM, Q4WEEKS
     Dates: start: 20250616
  7. VENLAFAXINE [Concomitant]
     Active Substance: VENLAFAXINE HYDROCHLORIDE
  8. RISEDRONATE SODIUM [Concomitant]
     Active Substance: RISEDRONATE SODIUM
  9. VITAMIN B-COMPLEX [Concomitant]
     Active Substance: DEXPANTHENOL\NIACINAMIDE\PYRIDOXINE HYDROCHLORIDE\RIBOFLAVIN 5^-PHOSPHATE SODIUM\THIAMINE HYDROCHLOR
  10. VITAMIN D [Concomitant]
     Active Substance: VITAMIN D NOS
  11. Calcium+magnesium [Concomitant]
  12. Ocu-force [Concomitant]
  13. OMEGA 3 [Concomitant]
     Active Substance: CAPSAICIN
  14. PREDNISONE [Concomitant]
     Active Substance: PREDNISONE
  15. FISH OIL [Concomitant]
     Active Substance: FISH OIL
  16. ROSUVASTATIN [Concomitant]
     Active Substance: ROSUVASTATIN
  17. ASPIRIN [Concomitant]
     Active Substance: ASPIRIN
  18. TYLENOL [Concomitant]
     Active Substance: ACETAMINOPHEN
  19. TYLENOL ARTHRITIS PAIN [Concomitant]
     Active Substance: ACETAMINOPHEN
  20. AMLODIPINE [Concomitant]
     Active Substance: AMLODIPINE BESYLATE

REACTIONS (6)
  - Blood pressure increased [Not Recovered/Not Resolved]
  - Alopecia [Unknown]
  - Dry skin [Unknown]
  - COVID-19 [Unknown]
  - Oxygen saturation decreased [Unknown]
  - Asthenia [Unknown]
